FAERS Safety Report 19843944 (Version 2)
Quarter: 2021Q3

REPORT INFORMATION
  Report Type: Spontaneous
  Country: JP (occurrence: JP)
  Receive Date: 20210917
  Receipt Date: 20210921
  Transmission Date: 20211014
  Serious: Yes (Other)
  Sender: FDA-Public Use
  Company Number: JP-UCBSA-2021043215

PATIENT
  Age: 8 Decade
  Sex: Male

DRUGS (3)
  1. E KEPPRA [Suspect]
     Active Substance: LEVETIRACETAM
     Indication: FOCAL DYSCOGNITIVE SEIZURES
     Dosage: 1500 MILLIGRAM, 2X/DAY (BID)
     Route: 048
  2. DEPAKENE?R [Suspect]
     Active Substance: VALPROATE SODIUM
     Indication: PRODUCT USED FOR UNKNOWN INDICATION
     Dosage: 1200 MILLIGRAM, DAILY
  3. TOPINA [Concomitant]
     Active Substance: TOPIRAMATE
     Indication: PRODUCT USED FOR UNKNOWN INDICATION
     Dosage: 300 MILLIGRAM, ONCE DAILY (QD)

REACTIONS (5)
  - Subarachnoid haemorrhage [Recovered/Resolved]
  - Therapeutic response decreased [Unknown]
  - Fall [Recovered/Resolved]
  - Parkinsonian gait [Recovered/Resolved]
  - Contusion [Recovered/Resolved]
